FAERS Safety Report 10998527 (Version 1)
Quarter: 2015Q2

REPORT INFORMATION
  Report Type: Spontaneous
  Country: US (occurrence: US)
  Receive Date: 20150408
  Receipt Date: 20150408
  Transmission Date: 20150821
  Serious: No
  Sender: FDA-Public Use
  Company Number: US-SA-2014SA039932

PATIENT

DRUGS (4)
  1. ANTIHISTAMINES [Suspect]
     Active Substance: ANTIHISTAMINES NOS
     Route: 065
  2. BENADRYL [Suspect]
     Active Substance: DIPHENHYDRAMINE HYDROCHLORIDE
     Route: 065
  3. ADVIL [Suspect]
     Active Substance: IBUPROFEN
     Route: 065
  4. ALLEGRA [Suspect]
     Active Substance: FEXOFENADINE HYDROCHLORIDE
     Route: 048

REACTIONS (4)
  - Extra dose administered [Unknown]
  - Dry eye [Unknown]
  - Adverse event [Unknown]
  - Sinus disorder [Unknown]
